FAERS Safety Report 24606174 (Version 1)
Quarter: 2024Q4

REPORT INFORMATION
  Report Type: Report from Study
  Country: US (occurrence: US)
  Receive Date: 20241112
  Receipt Date: 20241112
  Transmission Date: 20250115
  Serious: No
  Sender: ACADIA PHARMACEUTICALS
  Company Number: US-ACADIA PHARMACEUTICALS INC.-ACA-2024-PIM-006590

PATIENT
  Sex: Female

DRUGS (12)
  1. NUPLAZID [Suspect]
     Active Substance: PIMAVANSERIN TARTRATE
     Indication: Parkinson^s disease
     Dosage: 10 MILLIGRAM, QD AT BEDTIME
     Route: 048
     Dates: start: 20240625
  2. LOSARTAN POTASSIUM [Concomitant]
     Active Substance: LOSARTAN POTASSIUM
  3. GABAPENTIN [Concomitant]
     Active Substance: GABAPENTIN
  4. VITAMIN C [Concomitant]
     Active Substance: ASCORBIC ACID
  5. AMANTADINE [Concomitant]
     Active Substance: AMANTADINE
  6. VITAMIN B12 [Concomitant]
     Active Substance: CYANOCOBALAMIN
  7. METHOCARBAMOL [Concomitant]
     Active Substance: METHOCARBAMOL
  8. VITAMIN D NOS [Concomitant]
     Active Substance: CHOLECALCIFEROL\ERGOCALCIFEROL
     Dosage: 400
  9. EZETIMIBE [Concomitant]
     Active Substance: EZETIMIBE
  10. MAGNESIUM [Concomitant]
     Active Substance: MAGNESIUM
  11. RYTARY [Concomitant]
     Active Substance: CARBIDOPA\LEVODOPA
  12. VITAMINS [Concomitant]
     Active Substance: VITAMINS

REACTIONS (1)
  - Adverse drug reaction [Unknown]
